FAERS Safety Report 8258741-4 (Version None)
Quarter: 2012Q2

REPORT INFORMATION
  Report Type: 
  Country: None (occurrence: None)
  Receive Date: 20120404
  Receipt Date: 20120404
  Transmission Date: 20120825
  Serious: Yes (Other)
  Sender: FDA-Public Use
  Company Number: None

PATIENT
  Age: 37 Year
  Sex: Female
  Weight: 63.502 kg

DRUGS (1)
  1. AMOXICILLIN [Suspect]
     Indication: TONSILLITIS
     Dosage: 2 TEASPOONS
     Route: 048
     Dates: start: 20120312, end: 20120312

REACTIONS (6)
  - ANXIETY [None]
  - PARAESTHESIA [None]
  - DEPRESSION [None]
  - VERTIGO [None]
  - HYPOAESTHESIA [None]
  - PAIN [None]
